FAERS Safety Report 8113595-1 (Version None)
Quarter: 2012Q1

REPORT INFORMATION
  Report Type: 
  Country: None (occurrence: None)
  Receive Date: 20120203
  Receipt Date: 20120127
  Transmission Date: 20120608
  Serious: Yes (Other)
  Sender: FDA-Public Use
  Company Number: BR-PFIZER INC-2012024815

PATIENT
  Age: 81 Year
  Sex: Male

DRUGS (2)
  1. XALATAN [Suspect]
     Dosage: UNK
     Dates: start: 20110101
  2. LATANOPROST [Suspect]
     Dosage: 1.5UG (ONE DROP IN THE RIGHT EYE), UNSPECIFIED FREQUENCY
     Route: 047
     Dates: start: 20110101

REACTIONS (2)
  - CARDIAC DISORDER [None]
  - DIZZINESS [None]
